FAERS Safety Report 5197700-5 (Version None)
Quarter: 2007Q1

REPORT INFORMATION
  Report Type: 
  Country: None (occurrence: None)
  Receive Date: 20070103
  Receipt Date: 20061207
  Transmission Date: 20070707
  Serious: No
  Sender: FDA-Public Use
  Company Number: GB-PFIZER INC-2006142094

PATIENT

DRUGS (1)
  1. NEURONTIN [Suspect]
     Route: 048

REACTIONS (1)
  - NO ADVERSE EFFECT [None]
